FAERS Safety Report 6075421-4 (Version None)
Quarter: 2009Q1

REPORT INFORMATION
  Report Type: 
  Country: None (occurrence: None)
  Receive Date: 20090212
  Receipt Date: 20090205
  Transmission Date: 20090719
  Serious: Yes (Congenital Anomaly)
  Sender: FDA-Public Use
  Company Number: A0680366A

PATIENT
  Sex: Female

DRUGS (8)
  1. PAXIL [Suspect]
     Indication: DEPRESSION
     Dates: start: 19940101, end: 20040101
  2. VITAMIN TAB [Concomitant]
  3. KETOCONAZOLE [Concomitant]
  4. FASTIN [Concomitant]
  5. SOMA [Concomitant]
  6. DALMANE [Concomitant]
  7. ALUPENT [Concomitant]
  8. PROCARDIA [Concomitant]
     Dates: end: 19970801

REACTIONS (4)
  - ATRIAL SEPTAL DEFECT [None]
  - CONGENITAL ANOMALY [None]
  - DRUG EXPOSURE DURING PREGNANCY [None]
  - MATERNAL DRUGS AFFECTING FOETUS [None]
